FAERS Safety Report 7945789-X (Version None)
Quarter: 2011Q4

REPORT INFORMATION
  Report Type: 
  Country: None (occurrence: None)
  Receive Date: 20111129
  Receipt Date: 20111121
  Transmission Date: 20120403
  Serious: Yes (Life-Threatening, Hospitalization)
  Sender: FDA-Public Use
  Company Number: US-CELGENEUS-163-21660-11113099

PATIENT
  Age: 50 Year
  Sex: Female
  Weight: 77.2 kg

DRUGS (11)
  1. PEGFILGRASTIM [Suspect]
     Route: 065
     Dates: end: 20090319
  2. DOXORUBICIN HCL [Suspect]
     Route: 041
     Dates: end: 20090319
  3. ABRAXANE [Suspect]
     Indication: BREAST CANCER
     Dosage: 80 MILLIGRAM
     Route: 041
     Dates: end: 20090107
  4. CYCLOPHOSPHAMIDE [Suspect]
     Indication: BREAST CANCER
     Dosage: 600 MILLIGRAM
     Route: 041
     Dates: start: 20080820, end: 20081008
  5. CYCLOPHOSPHAMIDE [Suspect]
     Route: 041
     Dates: end: 20090319
  6. FILGRASTIM [Suspect]
     Indication: BREAST CANCER
     Dosage: 5 MILLIGRAM
     Route: 050
     Dates: start: 20080820, end: 20090319
  7. BEVACIZUMAB [Suspect]
     Route: 041
     Dates: end: 20090319
  8. FILGRASTIM [Suspect]
     Route: 050
     Dates: end: 20090319
  9. BEVACIZUMAB [Suspect]
     Indication: BREAST CANCER
     Dosage: 10 MILLIGRAM
     Route: 041
     Dates: start: 20080820, end: 20081224
  10. DOXORUBICIN HCL [Suspect]
     Indication: BREAST CANCER
     Dosage: 60 MILLIGRAM
     Route: 041
     Dates: start: 20080820, end: 20081008
  11. PEGFILGRASTIM [Suspect]
     Indication: BREAST CANCER
     Dosage: 6 MILLIGRAM
     Route: 065
     Dates: start: 20080820, end: 20080901

REACTIONS (3)
  - PLATELET COUNT DECREASED [None]
  - ACUTE MYELOID LEUKAEMIA [None]
  - ANAEMIA [None]
